FAERS Safety Report 8137557-3 (Version None)
Quarter: 2012Q1

REPORT INFORMATION
  Report Type: 
  Country: None (occurrence: None)
  Receive Date: 20120215
  Receipt Date: 20120210
  Transmission Date: 20120608
  Serious: No
  Sender: FDA-Public Use
  Company Number: US-PFIZER INC-2012037285

PATIENT
  Sex: Female
  Weight: 91 kg

DRUGS (1)
  1. FLECTOR [Suspect]
     Indication: KNEE ARTHROPLASTY
     Dosage: UNK, EVERY 12 HOURS
     Dates: start: 20120131

REACTIONS (1)
  - ANXIETY [None]
